FAERS Safety Report 22536250 (Version 1)
Quarter: 2023Q2

REPORT INFORMATION
  Report Type: Spontaneous
  Country: HR (occurrence: HR)
  Receive Date: 20230608
  Receipt Date: 20230608
  Transmission Date: 20230722
  Serious: Yes (Death, Other)
  Sender: FDA-Public Use
  Company Number: HR-AMGEN-HRVSP2023093466

PATIENT

DRUGS (2)
  1. PEGFILGRASTIM [Suspect]
     Active Substance: PEGFILGRASTIM
     Indication: Product used for unknown indication
     Dosage: UNK
     Route: 065
  2. RITUXIMAB [Suspect]
     Active Substance: RITUXIMAB
     Indication: Diffuse large B-cell lymphoma
     Dosage: UNK
     Route: 065

REACTIONS (35)
  - Death [Fatal]
  - Infection [Fatal]
  - Myocardial infarction [Fatal]
  - Ischaemic stroke [Fatal]
  - Intestinal perforation [Fatal]
  - Lymphoma [Fatal]
  - Neurotoxicity [Fatal]
  - Toxicity to various agents [Fatal]
  - Diffuse large B-cell lymphoma [Unknown]
  - Haematotoxicity [Unknown]
  - Neutropenia [Unknown]
  - Anaemia [Unknown]
  - Febrile neutropenia [Unknown]
  - Sepsis [Unknown]
  - Septic shock [Unknown]
  - Pneumonia [Unknown]
  - Clostridium difficile colitis [Unknown]
  - Neuropathy peripheral [Unknown]
  - Device related thrombosis [Unknown]
  - Deep vein thrombosis [Unknown]
  - Pulmonary embolism [Unknown]
  - Atrial fibrillation [Unknown]
  - Angina pectoris [Unknown]
  - Cardiac failure [Unknown]
  - Upper gastrointestinal haemorrhage [Unknown]
  - Lower gastrointestinal haemorrhage [Unknown]
  - Neoplasm [Unknown]
  - Chronic lymphocytic leukaemia [Unknown]
  - Myelodysplastic syndrome [Unknown]
  - Thrombocytopenia [Unknown]
  - Atrial flutter [Unknown]
  - Urinary tract infection [Unknown]
  - Upper respiratory tract infection [Unknown]
  - Skin infection [Unknown]
  - Therapy partial responder [Unknown]
